FAERS Safety Report 7571775-8 (Version None)
Quarter: 2011Q2

REPORT INFORMATION
  Report Type: 
  Country: None (occurrence: None)
  Receive Date: 20110624
  Receipt Date: 20110617
  Transmission Date: 20111010
  Serious: Yes (Other)
  Sender: FDA-Public Use
  Company Number: US-PFIZER INC-2011053163

PATIENT
  Sex: Female
  Weight: 40.816 kg

DRUGS (2)
  1. TAMBOCOR [Concomitant]
  2. SUTENT [Suspect]
     Indication: GASTROINTESTINAL STROMAL TUMOUR
     Dosage: 25 MG, 1X/DAY, CYCLICALLY
     Route: 048
     Dates: start: 20110224

REACTIONS (4)
  - ELECTROCARDIOGRAM QT PROLONGED [None]
  - TACHYARRHYTHMIA [None]
  - CHEST DISCOMFORT [None]
  - ROTATOR CUFF SYNDROME [None]
